FAERS Safety Report 16558133 (Version 2)
Quarter: 2019Q4

REPORT INFORMATION
  Report Type: Report from Study
  Country: US (occurrence: US)
  Receive Date: 20190711
  Receipt Date: 20191106
  Transmission Date: 20200122
  Serious: Yes (Other)
  Sender: FDA-Public Use
  Company Number: PHEH2019US028905

PATIENT
  Age: 64 Year
  Sex: Female
  Weight: 78.01 kg

DRUGS (1)
  1. GILENYA [Suspect]
     Active Substance: FINGOLIMOD HYDROCHLORIDE
     Indication: MULTIPLE SCLEROSIS
     Dosage: 0.5 MG, QD
     Route: 048
     Dates: start: 2011

REACTIONS (3)
  - Retinal cyst [Unknown]
  - Macular oedema [Unknown]
  - Macular degeneration [Unknown]

NARRATIVE: CASE EVENT DATE: 201804
